FAERS Safety Report 4757336-4 (Version None)
Quarter: 2005Q3

REPORT INFORMATION
  Report Type: 
  Country: None (occurrence: None)
  Receive Date: 20050831
  Receipt Date: 20050808
  Transmission Date: 20060218
  Serious: Yes (Other)
  Sender: FDA-Public Use
  Company Number: PHBS2005JP11716

PATIENT
  Age: 31 Year
  Sex: Female

DRUGS (1)
  1. METHERGINE [Suspect]
     Route: 048

REACTIONS (7)
  - ANGIOPATHY [None]
  - BLOOD PRESSURE INCREASED [None]
  - CONFUSIONAL STATE [None]
  - CONVULSION [None]
  - HEADACHE [None]
  - NAUSEA [None]
  - SUBARACHNOID HAEMORRHAGE [None]
